FAERS Safety Report 14788879 (Version 2)
Quarter: 2018Q2

REPORT INFORMATION
  Report Type: Report from Study
  Country: None (occurrence: CR)
  Receive Date: 20180423
  Receipt Date: 20180605
  Transmission Date: 20180711
  Serious: Yes (Hospitalization, Other)
  Sender: FDA-Public Use
  Company Number: CR-ABBVIE-18K-039-2331283-00

PATIENT
  Age: 17 Year
  Sex: Female

DRUGS (1)
  1. HUMIRA [Suspect]
     Active Substance: ADALIMUMAB
     Indication: COLITIS ULCERATIVE
     Route: 058
     Dates: start: 20180302

REACTIONS (7)
  - Anaemia [Recovering/Resolving]
  - Haematochezia [Recovering/Resolving]
  - Pulmonary thrombosis [Recovering/Resolving]
  - Leukopenia [Not Recovered/Not Resolved]
  - Thrombosis [Recovering/Resolving]
  - Discomfort [Not Recovered/Not Resolved]
  - Pyrexia [Recovering/Resolving]

NARRATIVE: CASE EVENT DATE: 20180410
